FAERS Safety Report 4808855-3 (Version None)
Quarter: 2005Q4

REPORT INFORMATION
  Report Type: 
  Country: None (occurrence: None)
  Receive Date: 20051021
  Receipt Date: 20030919
  Transmission Date: 20060501
  Serious: Yes (Hospitalization, Other)
  Sender: FDA-Public Use
  Company Number: JP_030801682

PATIENT
  Age: 37 Year
  Sex: Male
  Weight: 78 kg

DRUGS (1)
  1. ZYPREXA [Suspect]
     Indication: SCHIZOPHRENIA
     Dosage: 10 MG DAY
     Dates: end: 20030501

REACTIONS (16)
  - ALANINE AMINOTRANSFERASE INCREASED [None]
  - ASPARTATE AMINOTRANSFERASE INCREASED [None]
  - BLOOD CHLORIDE INCREASED [None]
  - BLOOD CHOLESTEROL INCREASED [None]
  - BLOOD GLUCOSE INCREASED [None]
  - BLOOD TRIGLYCERIDES INCREASED [None]
  - DEHYDRATION [None]
  - DIABETIC KETOACIDOSIS [None]
  - DYSPNOEA [None]
  - HAEMOGLOBIN INCREASED [None]
  - HYPERLIPIDAEMIA [None]
  - LIVER DISORDER [None]
  - PCO2 DECREASED [None]
  - POLYDIPSIA [None]
  - POLYURIA [None]
  - URINE KETONE BODY PRESENT [None]
